FAERS Safety Report 5299140-7 (Version None)
Quarter: 2007Q2

REPORT INFORMATION
  Report Type: 
  Country: None (occurrence: None)
  Receive Date: 20070411
  Receipt Date: 20070411
  Transmission Date: 20071010
  Serious: Yes (Hospitalization, Disabling)
  Sender: FDA-Public Use
  Company Number: None

PATIENT
  Age: 30 Year
  Sex: Female
  Weight: 58.9676 kg

DRUGS (2)
  1. LARIAM [Suspect]
     Indication: MALARIA PROPHYLAXIS
     Dosage: 250 MG ONCE WEEKLY
     Dates: start: 19991001
  2. LARIAM [Suspect]
     Indication: MALARIA PROPHYLAXIS
     Dosage: 250 MG ONCE WEEKLY
     Dates: start: 20001101

REACTIONS (4)
  - BIPOLAR I DISORDER [None]
  - DISCOMFORT [None]
  - IMPAIRED WORK ABILITY [None]
  - PSYCHOTIC DISORDER [None]
